FAERS Safety Report 5503963-6 (Version None)
Quarter: 2007Q4

REPORT INFORMATION
  Report Type: 
  Country: None (occurrence: None)
  Receive Date: 20071030
  Receipt Date: 20071030
  Transmission Date: 20080405
  Serious: Yes (Life-Threatening, Hospitalization)
  Sender: FDA-Public Use
  Company Number: None

PATIENT
  Age: 95 Year
  Sex: Male

DRUGS (1)
  1. WARFARIN SODIUM [Suspect]
     Indication: ATRIAL FIBRILLATION
     Dosage: 5MG  EVERY DAY  PO
     Route: 048
     Dates: start: 19980326, end: 20071015

REACTIONS (5)
  - CEREBRAL HAEMORRHAGE [None]
  - DEHYDRATION [None]
  - INTERNATIONAL NORMALISED RATIO INCREASED [None]
  - RENAL FAILURE ACUTE [None]
  - SKIN LACERATION [None]
